FAERS Safety Report 11538661 (Version 1)
Quarter: 2015Q3

REPORT INFORMATION
  Report Type: Spontaneous
  Country: None (occurrence: None)
  Receive Date: 20150921
  Receipt Date: 20150921
  Transmission Date: 20151125
  Serious: No
  Sender: FDA-Public Use
  Company Number: None

PATIENT
  Age: 22 Year
  Sex: Female
  Weight: 60.78 kg

DRUGS (3)
  1. DIFFERIN GEL [Concomitant]
     Active Substance: ADAPALENE
  2. KETOCONAZOLE. [Concomitant]
     Active Substance: KETOCONAZOLE
  3. DOXYCYCLINE DOXYCYCLINE 100 [Suspect]
     Active Substance: DOXYCYCLINE
     Route: 048
     Dates: start: 20150901, end: 20150912

REACTIONS (2)
  - Headache [None]
  - Migraine [None]

NARRATIVE: CASE EVENT DATE: 20150911
